FAERS Safety Report 15662409 (Version 2)
Quarter: 2019Q1

REPORT INFORMATION
  Report Type: Report from Study
  Country: US (occurrence: US)
  Receive Date: 20181127
  Receipt Date: 20190109
  Transmission Date: 20190417
  Serious: No
  Sender: FDA-Public Use
  Company Number: US-009507513-1811USA011078

PATIENT
  Age: 30 Year
  Sex: Female
  Weight: 62.59 kg

DRUGS (1)
  1. IMPLANON [Suspect]
     Active Substance: ETONOGESTREL
     Dosage: IMPLANT/ROD
     Route: 059

REACTIONS (4)
  - Product quality issue [Not Recovered/Not Resolved]
  - Complication of device insertion [Not Recovered/Not Resolved]
  - Device deployment issue [Recovered/Resolved]
  - No adverse event [Unknown]

NARRATIVE: CASE EVENT DATE: 20181105
